FAERS Safety Report 7122223-3 (Version None)
Quarter: 2010Q4

REPORT INFORMATION
  Report Type: 
  Country: None (occurrence: None)
  Receive Date: 20101124
  Receipt Date: 20101117
  Transmission Date: 20110411
  Serious: Yes (Other)
  Sender: FDA-Public Use
  Company Number: US-TEVA-255851USA

PATIENT

DRUGS (1)
  1. SPRINTEC [Suspect]
     Route: 048

REACTIONS (3)
  - DYSPNOEA [None]
  - SWELLING FACE [None]
  - URTICARIA [None]
